FAERS Safety Report 17543446 (Version 1)
Quarter: 2020Q1

REPORT INFORMATION
  Report Type: Report from Study
  Country: US (occurrence: US)
  Receive Date: 20200316
  Receipt Date: 20200316
  Transmission Date: 20200409
  Serious: Yes (Hospitalization)
  Sender: FDA-Public Use
  Company Number: US-ROCHE-2564967

PATIENT
  Age: 65 Year
  Sex: Female
  Weight: 44.5 kg

DRUGS (13)
  1. DOXIL [Concomitant]
     Active Substance: DOXORUBICIN HYDROCHLORIDE
  2. CYCLOPHOSPHAMIDE. [Concomitant]
     Active Substance: CYCLOPHOSPHAMIDE
  3. LOMOTIL [Concomitant]
     Active Substance: ATROPINE SULFATE\DIPHENOXYLATE HYDROCHLORIDE
     Route: 065
  4. OLAPARIB. [Suspect]
     Active Substance: OLAPARIB
     Indication: BREAST CANCER
     Dosage: DATE OF MOST RECENT DOSE OF OLAPARIB PRIOR TO SAE: 09/DEC/2019
     Route: 048
     Dates: start: 20181102, end: 20191230
  5. FEMARA [Concomitant]
     Active Substance: LETROZOLE
  6. NOLVADEX [Concomitant]
     Active Substance: TAMOXIFEN CITRATE
  7. PALBOCICLIB [Concomitant]
     Active Substance: PALBOCICLIB
  8. ATEZOLIZUMAB. [Suspect]
     Active Substance: ATEZOLIZUMAB
     Indication: BREAST CANCER
     Dosage: ON DAY 1?DATE OF MOST RECENT DOSE (1200 MG) OF ATEZOLIZUMAB PRIOR TO SAE: 09/DEC/2019
     Route: 042
     Dates: start: 20181102, end: 20191230
  9. CAPECITABINE. [Suspect]
     Active Substance: CAPECITABINE
     Indication: PRODUCT USED FOR UNKNOWN INDICATION
     Route: 048
  10. FASLODEX [Concomitant]
     Active Substance: FULVESTRANT
  11. OCTREOTIDE. [Concomitant]
     Active Substance: OCTREOTIDE
     Route: 065
     Dates: start: 20200210
  12. PAREGORIC [BENZOIC ACID;CAMPHOR;ETHANOL;GLYCEROL;ILLICIUM VERUM OIL;PA [Concomitant]
     Route: 065
     Dates: start: 20200210
  13. IMODIUM [Concomitant]
     Active Substance: LOPERAMIDE HYDROCHLORIDE
     Route: 065

REACTIONS (1)
  - Enterocolitis [Recovering/Resolving]

NARRATIVE: CASE EVENT DATE: 20200210
